FAERS Safety Report 7721255-1 (Version None)
Quarter: 2011Q3

REPORT INFORMATION
  Report Type: 
  Country: None (occurrence: None)
  Receive Date: 20110831
  Receipt Date: 20110829
  Transmission Date: 20111222
  Serious: Yes (Other)
  Sender: FDA-Public Use
  Company Number: AU-PFIZER INC-2011200827

PATIENT
  Sex: Female

DRUGS (3)
  1. ZANTAC [Concomitant]
  2. XANAX [Concomitant]
  3. LIPITOR [Suspect]
     Dosage: 20 MG, UNK

REACTIONS (4)
  - STRESS [None]
  - MYALGIA [None]
  - MUSCULAR WEAKNESS [None]
  - MACULAR DEGENERATION [None]
